FAERS Safety Report 7644448-0 (Version None)
Quarter: 2011Q3

REPORT INFORMATION
  Report Type: 
  Country: None (occurrence: None)
  Receive Date: 20110729
  Receipt Date: 20110719
  Transmission Date: 20111222
  Serious: Yes (Hospitalization, Other)
  Sender: FDA-Public Use
  Company Number: US-ROCHE-772277

PATIENT
  Sex: Female
  Weight: 65.4 kg

DRUGS (3)
  1. RIBAVIRIN [Suspect]
     Route: 048
  2. PEGINTERFERON ALFA-2A [Suspect]
     Indication: HEPATITIS C
     Dosage: FORM: PRE-FILLED SYRINGE; IN WEEK 27
     Route: 058
     Dates: start: 20101121
  3. RIBAVIRIN [Suspect]
     Indication: HEPATITIS C
     Dosage: 600 MG IN MORNING AND 400 MG IN EVENING; IN WEEK 27
     Route: 048
     Dates: start: 20101121

REACTIONS (20)
  - ANAEMIA [None]
  - DECREASED APPETITE [None]
  - ALOPECIA [None]
  - TRANSFUSION [None]
  - MUSCULOSKELETAL PAIN [None]
  - DIZZINESS [None]
  - HYPOTONIA [None]
  - PALLOR [None]
  - DRY SKIN [None]
  - MEMORY IMPAIRMENT [None]
  - ASTHENIA [None]
  - CHAPPED LIPS [None]
  - DIARRHOEA [None]
  - NECK MASS [None]
  - ARTHRITIS [None]
  - FATIGUE [None]
  - SKIN BURNING SENSATION [None]
  - CANDIDIASIS [None]
  - FEELING ABNORMAL [None]
  - AMMONIA INCREASED [None]
